FAERS Safety Report 11458781 (Version 5)
Quarter: 2016Q1

REPORT INFORMATION
  Report Type: Report from Study
  Country: US (occurrence: US)
  Receive Date: 20150904
  Receipt Date: 20160205
  Transmission Date: 20160525
  Serious: Yes (Other)
  Sender: FDA-Public Use
  Company Number: US-ASTELLAS-2015US031697

PATIENT
  Age: 81 Year
  Sex: Male

DRUGS (11)
  1. SYMBICORT [Concomitant]
     Active Substance: BUDESONIDE\FORMOTEROL FUMARATE DIHYDRATE
     Indication: PRODUCT USED FOR UNKNOWN INDICATION
     Dosage: 160/4.5 MG, 2 IN 1 D
     Route: 055
     Dates: start: 201409
  2. PROVENTIL [Concomitant]
     Active Substance: ALBUTEROL
     Indication: PRODUCT USED FOR UNKNOWN INDICATION
     Dosage: 90 ?G, 2 IN 1 D (USE BEFORE SYMBICORT)
     Route: 055
     Dates: start: 2009
  3. LEVOTHYROXINE. [Concomitant]
     Active Substance: LEVOTHYROXINE
     Indication: THYROID DISORDER
     Route: 048
     Dates: start: 2010
  4. FISH OIL [Concomitant]
     Active Substance: FISH OIL
     Indication: PRODUCT USED FOR UNKNOWN INDICATION
     Dosage: 640, OMEGA 3, ONCE DAILY
     Route: 048
  5. MEGESTROL [Concomitant]
     Active Substance: MEGESTROL
     Indication: PRODUCT USED FOR UNKNOWN INDICATION
     Dosage: UNK UNK, UNKNOWN FREQ.
     Route: 065
     Dates: start: 20150714
  6. SIMVASTATIN. [Concomitant]
     Active Substance: SIMVASTATIN
     Indication: BLOOD CHOLESTEROL
     Dosage: 40 MG, 1 IN 1 D
     Route: 048
     Dates: start: 2003
  7. FLUNISOLIDE. [Concomitant]
     Active Substance: FLUNISOLIDE
     Indication: PROPHYLAXIS
     Dosage: 1 SPRAY EACH NOSTRIL, 1 IN 1 DAY
     Route: 045
     Dates: start: 200007
  8. CEFALEXIN [Concomitant]
     Active Substance: CEPHALEXIN
     Indication: PRODUCT USED FOR UNKNOWN INDICATION
     Dosage: UNK UNK, UNKNOWN FREQ.
     Route: 065
     Dates: start: 20150813
  9. B COMPLEX WITH B-12 [Concomitant]
     Indication: PRODUCT USED FOR UNKNOWN INDICATION
     Route: 060
  10. BENADRYL [Concomitant]
     Active Substance: DIPHENHYDRAMINE HYDROCHLORIDE
     Indication: PRODUCT USED FOR UNKNOWN INDICATION
     Dosage: UNK UNK, UNKNOWN FREQ.
     Route: 065
  11. ERLOTINIB [Suspect]
     Active Substance: ERLOTINIB
     Indication: NON-SMALL CELL LUNG CANCER
     Route: 048
     Dates: start: 20150627

REACTIONS (23)
  - Pulmonary oedema [Recovered/Resolved]
  - Pruritus [Unknown]
  - Dry skin [Unknown]
  - Pyrexia [Recovering/Resolving]
  - Deafness [Not Recovered/Not Resolved]
  - Malabsorption [Unknown]
  - Blood sodium decreased [Unknown]
  - Rash pruritic [Not Recovered/Not Resolved]
  - Anaemia [Not Recovered/Not Resolved]
  - Dysphagia [Not Recovered/Not Resolved]
  - Asthenia [Recovering/Resolving]
  - Cough [Not Recovered/Not Resolved]
  - Rash [Not Recovered/Not Resolved]
  - Skin ulcer [Not Recovered/Not Resolved]
  - Hypoacusis [Recovered/Resolved]
  - Lacrimation increased [Recovered/Resolved]
  - Constipation [Recovered/Resolved]
  - Diarrhoea [Recovering/Resolving]
  - Skin ulcer [Recovered/Resolved]
  - Skin exfoliation [Recovering/Resolving]
  - Dyspnoea [Not Recovered/Not Resolved]
  - Diarrhoea [Recovered/Resolved]
  - Weight decreased [Unknown]

NARRATIVE: CASE EVENT DATE: 20150627
